FAERS Safety Report 23855599 (Version 1)
Quarter: 2024Q2

REPORT INFORMATION
  Report Type: Spontaneous
  Country: US (occurrence: US)
  Receive Date: 20240514
  Receipt Date: 20240514
  Transmission Date: 20240716
  Serious: No
  Sender: FDA-Public Use
  Company Number: US-BAUSCHBL-2024BNL026676

PATIENT
  Age: 68 Year
  Sex: Female

DRUGS (1)
  1. XIIDRA [Suspect]
     Active Substance: LIFITEGRAST
     Indication: Dry eye
     Dosage: 1 GTT BID
     Route: 047
     Dates: start: 20240425, end: 20240504

REACTIONS (11)
  - Pruritus [Recovering/Resolving]
  - Dysphonia [Recovering/Resolving]
  - Oropharyngeal pain [Recovering/Resolving]
  - Rhinorrhoea [Recovering/Resolving]
  - Eye pain [Recovering/Resolving]
  - Sinus disorder [Not Recovered/Not Resolved]
  - Throat irritation [Recovering/Resolving]
  - Ocular discomfort [Recovering/Resolving]
  - Eye irritation [Recovering/Resolving]
  - Vision blurred [Recovering/Resolving]
  - Product after taste [Unknown]

NARRATIVE: CASE EVENT DATE: 20240101
